FAERS Safety Report 17885268 (Version 1)
Quarter: 2020Q2

REPORT INFORMATION
  Report Type: Spontaneous
  Country: US (occurrence: US)
  Receive Date: 20200611
  Receipt Date: 20200611
  Transmission Date: 20200714
  Serious: Yes (Death)
  Sender: FDA-Public Use
  Company Number: US-FARMAPROD-202006-0762

PATIENT
  Age: 74 Year
  Sex: Male

DRUGS (30)
  1. NALTREXONE HCL [Concomitant]
     Active Substance: NALTREXONE HYDROCHLORIDE
  2. BACTRIM [Concomitant]
     Active Substance: SULFAMETHOXAZOLE\TRIMETHOPRIM
     Dosage: 400-800 MG
  3. VITAMINE D [Concomitant]
     Active Substance: CHOLECALCIFEROL
  4. FAMOTIDINE. [Concomitant]
     Active Substance: FAMOTIDINE
  5. FUROSEMIDE. [Concomitant]
     Active Substance: FUROSEMIDE
  6. ERYTHROMYCIN. [Concomitant]
     Active Substance: ERYTHROMYCIN
  7. FLUOROURACIL. [Concomitant]
     Active Substance: FLUOROURACIL
  8. PHOSPHA NEUTRAL [Concomitant]
  9. METOPROLOL SUCCINATE. [Concomitant]
     Active Substance: METOPROLOL SUCCINATE
  10. VITAMINE C [Concomitant]
     Active Substance: ASCORBIC ACID
  11. POVIDONE-IODINE. [Concomitant]
     Active Substance: POVIDONE-IODINE
  12. ALLOPURINOL. [Concomitant]
     Active Substance: ALLOPURINOL
  13. SENSIPAR [Concomitant]
     Active Substance: CINACALCET HYDROCHLORIDE
  14. MOXIFLOXACIN. [Concomitant]
     Active Substance: MOXIFLOXACIN
  15. OXERVATE [Suspect]
     Active Substance: CENEGERMIN-BKBJ
     Indication: NEUROTROPHIC KERATOPATHY
     Route: 047
     Dates: start: 20200507
  16. LOTRIMIN AF ANTIFUNGAL [Concomitant]
     Active Substance: MICONAZOLE NITRATE
  17. CALCITRIOL. [Concomitant]
     Active Substance: CALCITRIOL
  18. MYCOPHENOLATE MOFETIL. [Concomitant]
     Active Substance: MYCOPHENOLATE MOFETIL
  19. ASPIRIN. [Concomitant]
     Active Substance: ASPIRIN
  20. DOXYCYCLINE HYCLATE. [Concomitant]
     Active Substance: DOXYCYCLINE HYCLATE
  21. TACROLIMUS. [Concomitant]
     Active Substance: TACROLIMUS
  22. CALCIUM CARBONATE. [Concomitant]
     Active Substance: CALCIUM CARBONATE
  23. LIPITOR [Concomitant]
     Active Substance: ATORVASTATIN CALCIUM
  24. LUBRICATING EYE DROPS [Concomitant]
     Active Substance: CARBOXYMETHYLCELLULOSE SODIUM
  25. FUROSEMIDE. [Concomitant]
     Active Substance: FUROSEMIDE
  26. ACETAMINOPHEN. [Concomitant]
     Active Substance: ACETAMINOPHEN
  27. COZAAR [Concomitant]
     Active Substance: LOSARTAN POTASSIUM
  28. SPIRONOLACTONE. [Concomitant]
     Active Substance: SPIRONOLACTONE
  29. LORAZEPAM. [Concomitant]
     Active Substance: LORAZEPAM
  30. SF 5000 PLUS [Concomitant]
     Active Substance: SODIUM FLUORIDE

REACTIONS (1)
  - Death [Fatal]

NARRATIVE: CASE EVENT DATE: 20200523
